FAERS Safety Report 9779132 (Version 2)
Quarter: 2013Q4

REPORT INFORMATION
  Report Type: Report from Study
  Country: US (occurrence: US)
  Receive Date: 20131223
  Receipt Date: 20131223
  Transmission Date: 20140711
  Serious: Yes (Hospitalization)
  Sender: FDA-Public Use
  Company Number: US-ACTELION-A-US2012-68191

PATIENT
  Age: 18 Year
  Sex: Male

DRUGS (17)
  1. VELETRI [Suspect]
     Indication: PULMONARY ARTERIAL HYPERTENSION
     Dosage: 18 NG/KG, PER MIN
     Route: 042
     Dates: start: 20110407
  2. ADCIRCA [Concomitant]
  3. SILDENAFIL [Concomitant]
  4. TORSEMIDE [Concomitant]
  5. HYDROCHLOROTHIAZIDE [Concomitant]
  6. SPIRONOLACTONE [Concomitant]
  7. MILRINONE [Concomitant]
  8. SOTALOL [Concomitant]
  9. MAGNESIUM OXIDE [Concomitant]
  10. LEVOTHYROXINE [Concomitant]
  11. SINGULAR [Concomitant]
  12. RANITIDINE [Concomitant]
  13. IRON SULFATE [Concomitant]
  14. ALBUTEROL [Concomitant]
  15. CALCIUM CARBONATE [Concomitant]
  16. KCL [Concomitant]
  17. COUMADIN [Concomitant]

REACTIONS (7)
  - Gastrostomy [Unknown]
  - Atrial flutter [Unknown]
  - Atrial tachycardia [Recovered/Resolved]
  - Heart rate increased [Recovered/Resolved]
  - Respiratory rate increased [Recovered/Resolved]
  - Hypotension [Recovered/Resolved]
  - Fatigue [Recovered/Resolved]
